FAERS Safety Report 24049447 (Version 1)
Quarter: 2024Q3

REPORT INFORMATION
  Report Type: Spontaneous
  Country: ES (occurrence: ES)
  Receive Date: 20240704
  Receipt Date: 20240704
  Transmission Date: 20241017
  Serious: Yes (Death)
  Sender: AMGEN
  Company Number: ES-AMGEN-ESPSP2024129123

PATIENT
  Age: 88 Year
  Sex: Female

DRUGS (2)
  1. ROMIPLOSTIM [Suspect]
     Active Substance: ROMIPLOSTIM
     Indication: Immune thrombocytopenia
     Dosage: UNK
     Route: 065
  2. FOSTAMATINIB [Concomitant]
     Active Substance: FOSTAMATINIB
     Indication: Immune thrombocytopenia
     Route: 065

REACTIONS (1)
  - General physical health deterioration [Fatal]
